FAERS Safety Report 21766255 (Version 1)
Quarter: 2022Q4

REPORT INFORMATION
  Report Type: Spontaneous
  Country: SE (occurrence: SE)
  Receive Date: 20221222
  Receipt Date: 20221222
  Transmission Date: 20230112
  Serious: Yes (Hospitalization)
  Sender: FDA-Public Use
  Company Number: None

PATIENT
  Age: 14 Year
  Sex: Female

DRUGS (4)
  1. FLUOXETINE [Suspect]
     Active Substance: FLUOXETINE HYDROCHLORIDE
     Indication: Product used for unknown indication
     Dosage: 16 ST FLUOXETIN 20 MG , UNIT DOSE :  320 MG  , FREQUENCY TIME :  1 TOTAL
     Dates: start: 20210412, end: 20210412
  2. IBUPROFEN [Suspect]
     Active Substance: IBUPROFEN
     Indication: Product used for unknown indication
     Dosage: UNIT DOSE : 1600 MG , FREQUENCY TIME : 1 TOTAL
     Dates: start: 20210412, end: 20210412
  3. MELATONIN [Suspect]
     Active Substance: MELATONIN
     Indication: Product used for unknown indication
     Dosage: 18 ST MELATONIN , FREQUENCY TIME : 1 TOTAL
     Dates: start: 20210412, end: 20210412
  4. LISDEXAMFETAMINE DIMESYLATE [Suspect]
     Active Substance: LISDEXAMFETAMINE DIMESYLATE
     Indication: Product used for unknown indication
     Dosage: UNIT DOSE : 360 MG , FREQUENCY TIME : 1 TOTAL
     Dates: start: 20210412, end: 20210412

REACTIONS (2)
  - Intentional self-injury [Unknown]
  - Intentional overdose [Unknown]

NARRATIVE: CASE EVENT DATE: 20210412
